FAERS Safety Report 21190595 (Version 2)
Quarter: 2022Q3

REPORT INFORMATION
  Report Type: Spontaneous
  Country: CA (occurrence: None)
  Receive Date: 20220809
  Receipt Date: 20220811
  Transmission Date: 20221027
  Serious: Yes (Hospitalization)
  Sender: FDA-Public Use
  Company Number: CA-ROCHE-3151470

PATIENT
  Age: 39 Year
  Sex: Female
  Weight: 115 kg

DRUGS (17)
  1. TOCILIZUMAB [Suspect]
     Active Substance: TOCILIZUMAB
     Indication: COVID-19 pneumonia
     Route: 042
  2. AMIODARONE [Suspect]
     Active Substance: AMIODARONE
     Indication: Tachycardia
     Route: 048
  3. AMIODARONE [Suspect]
     Active Substance: AMIODARONE
     Indication: Atrial fibrillation
     Route: 042
  4. AMIODARONE [Suspect]
     Active Substance: AMIODARONE
     Route: 042
  5. AMIODARONE [Suspect]
     Active Substance: AMIODARONE
     Route: 048
  6. AMIODARONE [Suspect]
     Active Substance: AMIODARONE
     Route: 048
  7. AMIODARONE [Suspect]
     Active Substance: AMIODARONE
     Route: 048
  8. AMIODARONE [Suspect]
     Active Substance: AMIODARONE
     Route: 048
  9. APIXABAN [Suspect]
     Active Substance: APIXABAN
     Indication: Anticoagulant therapy
     Route: 065
  10. APIXABAN [Suspect]
     Active Substance: APIXABAN
     Route: 065
  11. APIXABAN [Suspect]
     Active Substance: APIXABAN
     Route: 065
  12. APIXABAN [Suspect]
     Active Substance: APIXABAN
     Route: 065
  13. CARBAMAZEPINE [Suspect]
     Active Substance: CARBAMAZEPINE
     Indication: Epilepsy
     Route: 048
  14. DEXAMETHASONE [Concomitant]
     Active Substance: DEXAMETHASONE
     Indication: Anticoagulant therapy
     Route: 048
  15. ENOXAPARIN [Concomitant]
     Active Substance: ENOXAPARIN
     Indication: Tachycardia
     Route: 065
  16. ENOXAPARIN [Concomitant]
     Active Substance: ENOXAPARIN
     Indication: Atrial fibrillation
  17. LAMOTRIGINE [Concomitant]
     Active Substance: LAMOTRIGINE
     Indication: Epilepsy
     Route: 048

REACTIONS (2)
  - Drug interaction [Unknown]
  - Drug level changed [Unknown]
